FAERS Safety Report 9753002 (Version 2)
Quarter: 2014Q2

REPORT INFORMATION
  Report Type: Spontaneous
  Country: US (occurrence: US)
  Receive Date: 20131213
  Receipt Date: 20140604
  Transmission Date: 20141212
  Serious: Yes (Death, Hospitalization)
  Sender: FDA-Public Use
  Company Number: US-B.I. PHARMACEUTICALS,INC./RIDGEFIELD-2013-BI-41772BP

PATIENT
  Age: 78 Year
  Sex: Female
  Weight: 70.76 kg

DRUGS (15)
  1. PRADAXA [Suspect]
     Indication: ATRIAL FIBRILLATION
     Dosage: 300 MG
     Route: 048
     Dates: start: 20110128, end: 20111222
  2. CITRACAL D + HEART HEALTH [Concomitant]
     Dosage: 1 ANZ
     Route: 048
  3. CHOLECALCIPHEROL [Concomitant]
     Dosage: DOSE PER APPLICATION: 1000 UNIT
     Route: 048
  4. CYTOXAN [Concomitant]
     Route: 048
  5. FEOSOL [Concomitant]
     Dosage: 325 MG
     Route: 048
  6. ASCORBIC ACID [Concomitant]
     Dosage: 500 MG
     Route: 048
  7. FOLIC ACID [Concomitant]
     Dosage: 1 MG
     Route: 048
  8. COZAAR [Concomitant]
     Dosage: 50 MG
     Route: 048
  9. GLUCOPHAGE [Concomitant]
     Dosage: 500 MG
     Route: 048
  10. CENTRUM SILVER [Concomitant]
     Dosage: 1 ANZ
     Route: 048
  11. KLOR-CON [Concomitant]
     Dosage: 20 MEQ
     Route: 048
  12. PREDNISONE [Concomitant]
     Indication: HAEMOLYTIC ANAEMIA
     Dosage: 10 MG
     Route: 048
  13. ZOCOR [Concomitant]
     Dosage: DOSE PER APPLICATION: 20 MG AT HS
     Route: 048
  14. TORSEMIDE [Concomitant]
     Dosage: 80 MG
     Route: 048
  15. ZINC [Concomitant]
     Dosage: 220 MG
     Route: 048

REACTIONS (6)
  - Cerebrovascular accident [Fatal]
  - Rectal haemorrhage [Unknown]
  - Haemorrhagic anaemia [Unknown]
  - Gastrointestinal haemorrhage [Unknown]
  - Fall [Unknown]
  - Contusion [Unknown]
